FAERS Safety Report 5228752-1 (Version None)
Quarter: 2007Q1

REPORT INFORMATION
  Report Type: 
  Country: None (occurrence: None)
  Receive Date: 20070205
  Receipt Date: 20070126
  Transmission Date: 20070707
  Serious: Yes (Hospitalization)
  Sender: FDA-Public Use
  Company Number: US-JNJFOC-20070107596

PATIENT
  Sex: Male
  Weight: 136.08 kg

DRUGS (1)
  1. DURAGESIC-100 [Suspect]
     Indication: BACK PAIN
     Route: 062

REACTIONS (5)
  - COELIAC DISEASE [None]
  - DEHYDRATION [None]
  - INCORRECT DRUG ADMINISTRATION DURATION [None]
  - VOMITING [None]
  - WEIGHT DECREASED [None]
